FAERS Safety Report 8790744 (Version 1)
Quarter: 2012Q4

REPORT INFORMATION
  Report Type: Spontaneous
  Country: US (occurrence: None)
  Receive Date: 20120913
  Receipt Date: 20120913
  Transmission Date: 20130627
  Serious: Yes (Hospitalization)
  Sender: FDA-Public Use
  Company Number: None

PATIENT
  Age: 35 Year
  Sex: Female
  Weight: 113.7 kg

DRUGS (13)
  1. ZONEGRAN [Suspect]
  2. CEFTRIAXONE [Suspect]
     Indication: UTI
     Route: 042
  3. MORPHINE IR [Concomitant]
  4. DICYCLOMINE [Concomitant]
  5. DIAZEPAM [Concomitant]
  6. LORAZEPAM [Concomitant]
  7. MECLIZINE [Concomitant]
  8. HYDROXIZINE [Concomitant]
  9. ZANAFLEX [Concomitant]
  10. BUPAP [Concomitant]
  11. ASERAPINE [Concomitant]
  12. PRISTIQUE [Concomitant]
  13. MULTIVITAMIN [Concomitant]

REACTIONS (4)
  - Mental status changes [None]
  - Hepatic function abnormal [None]
  - Condition aggravated [None]
  - Rash [None]
